FAERS Safety Report 5842014-0 (Version None)
Quarter: 2008Q3

REPORT INFORMATION
  Report Type: 
  Country: None (occurrence: None)
  Receive Date: 20080811
  Receipt Date: 20080811
  Transmission Date: 20090109
  Serious: No
  Sender: FDA-Public Use
  Company Number: None

PATIENT
  Age: 54 Year
  Sex: Female
  Weight: 58.9676 kg

DRUGS (2)
  1. METOPROLOL SUCCINATE EXTENDED RELEASE [Suspect]
     Indication: MITRAL VALVE PROLAPSE
     Dosage: 50 MG ONCE A DAY PO
     Route: 048
     Dates: start: 20080801, end: 20080810
  2. METOPROLOL SUCCINATE EXTENDED RELEASE [Suspect]
     Indication: TACHYCARDIA
     Dosage: 50 MG ONCE A DAY PO
     Route: 048
     Dates: start: 20080801, end: 20080810

REACTIONS (3)
  - BRONCHOSPASM [None]
  - OEDEMA [None]
  - OEDEMA PERIPHERAL [None]
